FAERS Safety Report 7408221-0 (Version None)
Quarter: 2011Q2

REPORT INFORMATION
  Report Type: 
  Country: None (occurrence: None)
  Receive Date: 20110412
  Receipt Date: 20101217
  Transmission Date: 20111010
  Serious: No
  Sender: FDA-Public Use
  Company Number: A0900721A

PATIENT
  Age: 53 Year
  Sex: Male

DRUGS (3)
  1. URETRON DS [Concomitant]
  2. JALYN [Suspect]
     Route: 065
     Dates: start: 20101007, end: 20101214
  3. AVALIDE [Concomitant]

REACTIONS (1)
  - DIZZINESS [None]
